FAERS Safety Report 7003651-3 (Version None)
Quarter: 2010Q3

REPORT INFORMATION
  Report Type: 
  Country: None (occurrence: None)
  Receive Date: 20100920
  Receipt Date: 20090814
  Transmission Date: 20110219
  Serious: No
  Sender: FDA-Public Use
  Company Number: US-WYE-H10616809

PATIENT
  Sex: Male
  Weight: 72.64 kg

DRUGS (1)
  1. PROTONIX [Suspect]
     Indication: OESOPHAGITIS
     Route: 048
     Dates: start: 20081001

REACTIONS (2)
  - DRY EYE [None]
  - EYE SWELLING [None]
